FAERS Safety Report 4338051-8 (Version None)
Quarter: 2004Q1

REPORT INFORMATION
  Report Type: 
  Country: None (occurrence: None)
  Receive Date: 20040329
  Receipt Date: 20031202
  Transmission Date: 20041129
  Serious: No
  Sender: FDA-Public Use
  Company Number: US_031299335

PATIENT
  Age: 11 Year
  Sex: Male
  Weight: 59 kg

DRUGS (4)
  1. HUMALOG [Suspect]
     Indication: DIABETES MELLITUS
     Dosage: 18 U DAY
     Dates: start: 20010301
  2. STRATTERA [Suspect]
     Indication: ATTENTION DEFICIT/HYPERACTIVITY DISORDER
     Dates: start: 20030801
  3. LANTUS [Concomitant]
  4. ALLEGRA [Concomitant]

REACTIONS (3)
  - HYPOGLYCAEMIA [None]
  - MEDICATION ERROR [None]
  - TREMOR [None]
